FAERS Safety Report 5843271-7 (Version None)
Quarter: 2008Q3

REPORT INFORMATION
  Report Type: 
  Country: None (occurrence: None)
  Receive Date: 20080813
  Receipt Date: 20080806
  Transmission Date: 20090109
  Serious: Yes (Hospitalization)
  Sender: FDA-Public Use
  Company Number: DE-SOLVAY-00308003332

PATIENT
  Age: 809 Month
  Sex: Male
  Weight: 59 kg

DRUGS (1)
  1. KREON GRANULAT [Suspect]
     Indication: GASTROINTESTINAL DISORDER POSTOPERATIVE
     Dosage: DAILY DOSE: 1497 MILLIGRAM(S)
     Route: 048
     Dates: start: 20080401, end: 20080724

REACTIONS (2)
  - OESOPHAGEAL PAIN [None]
  - OESOPHAGEAL ULCER [None]
